FAERS Safety Report 21181533 (Version 1)
Quarter: 2022Q3

REPORT INFORMATION
  Report Type: Spontaneous
  Country: US (occurrence: US)
  Receive Date: 20220806
  Receipt Date: 20220806
  Transmission Date: 20221027
  Serious: No
  Sender: FDA-Public Use
  Company Number: US-SANOFI-01213364

PATIENT
  Age: 59 Year
  Sex: Female

DRUGS (5)
  1. DUPIXENT [Suspect]
     Active Substance: DUPILUMAB
     Indication: Dermatitis atopic
     Dosage: 300 MG, QOW
     Dates: start: 20220726
  2. MONTELUKAST [Concomitant]
     Active Substance: MONTELUKAST SODIUM
  3. DOXEPIN [Concomitant]
     Active Substance: DOXEPIN
  4. CHOLESTYRAMINE [Concomitant]
     Active Substance: CHOLESTYRAMINE
  5. NALTREXONE [Concomitant]
     Active Substance: NALTREXONE

REACTIONS (2)
  - Rhinorrhoea [Not Recovered/Not Resolved]
  - Fatigue [Not Recovered/Not Resolved]
